FAERS Safety Report 7818360-8 (Version None)
Quarter: 2011Q4

REPORT INFORMATION
  Report Type: 
  Country: None (occurrence: None)
  Receive Date: 20111017
  Receipt Date: 20111010
  Transmission Date: 20120403
  Serious: Yes (Other)
  Sender: FDA-Public Use
  Company Number: US-US-EMD SERONO, INC.-7089435

PATIENT
  Sex: Female
  Weight: 77 kg

DRUGS (15)
  1. ESTRADIOL DIS [Concomitant]
  2. TYLENOL PM EX [Concomitant]
  3. FISH OIL [Concomitant]
  4. ALPHA LIPOIC [Concomitant]
  5. REBIF [Suspect]
     Indication: MULTIPLE SCLEROSIS
     Route: 058
  6. MELOXICAM [Concomitant]
  7. DOXEPIN HCL [Concomitant]
  8. ZINC [Concomitant]
  9. EPINEPHRINE [Concomitant]
  10. FLUTICASONE SPR [Concomitant]
  11. LEXAPRO [Concomitant]
  12. VITAMIN D [Concomitant]
  13. LOSARTAN POT [Concomitant]
  14. LUTEIN BLEND [Concomitant]
  15. ASPIRIN [Concomitant]

REACTIONS (1)
  - RESPIRATORY DISTRESS [None]
